FAERS Safety Report 7816466-0 (Version None)
Quarter: 2011Q4

REPORT INFORMATION
  Report Type: 
  Country: None (occurrence: None)
  Receive Date: 20111017
  Receipt Date: 20111005
  Transmission Date: 20120403
  Serious: Yes (Other)
  Sender: FDA-Public Use
  Company Number: CA-JNJFOC-20111002869

PATIENT
  Sex: Female
  Weight: 59.1 kg

DRUGS (4)
  1. REMICADE [Suspect]
     Route: 042
     Dates: start: 20111005
  2. DIPHENHYDRAMINE HCL [Concomitant]
     Route: 042
  3. REMICADE [Suspect]
     Indication: CROHN'S DISEASE
     Route: 042
     Dates: start: 20110811
  4. SOLU-CORTEF [Concomitant]
     Route: 042

REACTIONS (6)
  - PALPITATIONS [None]
  - CHEST DISCOMFORT [None]
  - FLUSHING [None]
  - LIP SWELLING [None]
  - NAUSEA [None]
  - INFUSION RELATED REACTION [None]
